FAERS Safety Report 9665628 (Version 1)
Quarter: 2013Q4

REPORT INFORMATION
  Report Type: Spontaneous
  Country: US (occurrence: None)
  Receive Date: 20131031
  Receipt Date: 20131031
  Transmission Date: 20140711
  Serious: Yes (Hospitalization)
  Sender: FDA-Public Use
  Company Number: None

PATIENT
  Age: 44 Year
  Sex: Female
  Weight: 76.2 kg

DRUGS (4)
  1. NULOJIX [Suspect]
     Indication: RENAL TRANSPLANT
     Route: 042
  2. CELLCEPT [Suspect]
     Indication: RENAL TRANSPLANT
     Dosage: 1 G, BID, PO
     Route: 048
     Dates: start: 20130409
  3. ALEMTUZUMAB [Concomitant]
  4. PREDNISONE [Concomitant]

REACTIONS (3)
  - Nausea [None]
  - Vomiting [None]
  - Procedural pain [None]
